FAERS Safety Report 15041192 (Version 4)
Quarter: 2018Q3

REPORT INFORMATION
  Report Type: Spontaneous
  Country: CA (occurrence: CA)
  Receive Date: 20180621
  Receipt Date: 20180813
  Transmission Date: 20181010
  Serious: Yes (Other)
  Sender: FDA-Public Use
  Company Number: CA-BEH-2018091860

PATIENT
  Age: 61 Year
  Sex: Female
  Weight: 130 kg

DRUGS (3)
  1. ALBUREX [Suspect]
     Active Substance: ALBUMIN HUMAN
     Indication: HYPOALBUMINAEMIA
  2. ALBUREX [Suspect]
     Active Substance: ALBUMIN HUMAN
     Indication: ALCOHOLISM
  3. ALBUREX [Suspect]
     Active Substance: ALBUMIN HUMAN
     Indication: GASTROINTESTINAL HAEMORRHAGE
     Dosage: 200 ML, UNK
     Route: 042
     Dates: start: 20160413

REACTIONS (1)
  - Hepatitis C virus test positive [Recovering/Resolving]
